FAERS Safety Report 11422576 (Version 1)
Quarter: 2015Q3

REPORT INFORMATION
  Report Type: Spontaneous
  Country: US (occurrence: US)
  Receive Date: 20150827
  Receipt Date: 20150827
  Transmission Date: 20151125
  Serious: No
  Sender: FDA-Public Use
  Company Number: US-BAYER-2015-409234

PATIENT
  Age: 39 Year
  Sex: Female
  Weight: 72.56 kg

DRUGS (1)
  1. CLARITIN-D 24 HOUR [Suspect]
     Active Substance: LORATADINE\PSEUDOEPHEDRINE SULFATE
     Indication: SEASONAL ALLERGY
     Dosage: 1 DF, QD
     Route: 048
     Dates: start: 201505, end: 201505

REACTIONS (2)
  - Drug ineffective [None]
  - Nausea [Recovered/Resolved]

NARRATIVE: CASE EVENT DATE: 201505
